FAERS Safety Report 9205771 (Version 1)
Quarter: 2013Q2

REPORT INFORMATION
  Report Type: Spontaneous
  Country: US (occurrence: None)
  Receive Date: 20130401
  Receipt Date: 20130401
  Transmission Date: 20140414
  Serious: Yes (Hospitalization)
  Sender: FDA-Public Use
  Company Number: TPA2013A02376

PATIENT
  Age: 25 Year
  Sex: Female

DRUGS (1)
  1. EDARBI [Suspect]
     Indication: HYPERTENSION
     Dosage: 40 MG, 1 IN 1 D, PER ORAL
     Route: 048

REACTIONS (2)
  - Cyanosis [None]
  - Loss of consciousness [None]
